FAERS Safety Report 24731499 (Version 2)
Quarter: 2024Q4

REPORT INFORMATION
  Report Type: Spontaneous
  Country: NZ (occurrence: NZ)
  Receive Date: 20241213
  Receipt Date: 20241217
  Transmission Date: 20250115
  Serious: Yes (Death)
  Sender: MYLAN
  Company Number: NZ-MYLANLABS-2024M1112634

PATIENT
  Sex: Male

DRUGS (9)
  1. CLOZARIL [Suspect]
     Active Substance: CLOZAPINE
     Indication: Schizophrenia
     Dosage: 12.5 MILLIGRAM, BID (12.5 MG BD)
     Route: 048
     Dates: start: 20221206
  2. CLOZARIL [Suspect]
     Active Substance: CLOZAPINE
     Dosage: UNK
     Route: 048
     Dates: start: 20241209, end: 20241209
  3. QUETIAPINE [Concomitant]
     Active Substance: QUETIAPINE
     Dosage: 12.5 MILLIGRAM (AT 13:30)
     Route: 065
  4. FLUDROCORTISONE [Concomitant]
     Active Substance: FLUDROCORTISONE
     Dosage: 100 MILLIGRAM, AM (MANE)
     Route: 065
  5. Laxol [Concomitant]
     Dosage: 2 DOSAGE FORM, BID (2 BD)
     Route: 065
  6. PANTOPRAZOLE [Concomitant]
     Active Substance: PANTOPRAZOLE
     Dosage: 40 MILLIGRAM, AM (MANE)
     Route: 065
  7. CARBIDOPA [Concomitant]
     Active Substance: CARBIDOPA
     Dosage: 2 DOSAGE FORM, TID (2 TDS)
     Route: 065
  8. CARBIDOPA\LEVODOPA [Concomitant]
     Active Substance: CARBIDOPA\LEVODOPA
     Dosage: UNK, PM (200/50MG CR NOCTE)
     Route: 065
  9. SERTRALINE [Concomitant]
     Active Substance: SERTRALINE HYDROCHLORIDE
     Dosage: 50 MILLIGRAM, QD (DAILY)
     Route: 065

REACTIONS (1)
  - Dementia [Fatal]
